FAERS Safety Report 7604551-8 (Version None)
Quarter: 2011Q3

REPORT INFORMATION
  Report Type: 
  Country: None (occurrence: None)
  Receive Date: 20110712
  Receipt Date: 20110629
  Transmission Date: 20111222
  Serious: Yes (Hospitalization)
  Sender: FDA-Public Use
  Company Number: SK-NAPPMUNDI-DEU-2011-0007515

PATIENT
  Sex: Female

DRUGS (2)
  1. BUPRENORPHINE [Concomitant]
     Dosage: 40 MG, UNK
     Route: 062
  2. SEVREDOL 20 MG [Suspect]
     Indication: CANCER PAIN
     Dosage: 20 MG, BID
     Route: 048

REACTIONS (2)
  - CONSTIPATION [None]
  - GASTROINTESTINAL HYPOMOTILITY [None]
